FAERS Safety Report 5781920-2 (Version None)
Quarter: 2008Q2

REPORT INFORMATION
  Report Type: 
  Country: None (occurrence: None)
  Receive Date: 20080623
  Receipt Date: 20080618
  Transmission Date: 20081010
  Serious: Yes (Hospitalization)
  Sender: FDA-Public Use
  Company Number: B0514474A

PATIENT
  Age: 38 Year
  Sex: Male
  Weight: 76 kg

DRUGS (11)
  1. EPZICOM [Suspect]
     Indication: HIV INFECTION
     Route: 048
     Dates: start: 20060814, end: 20080314
  2. EPIVIR [Concomitant]
     Indication: HIV INFECTION
     Dosage: 100MG PER DAY
     Route: 048
     Dates: start: 20080321
  3. RETROVIR [Concomitant]
     Indication: HIV INFECTION
     Dosage: 400MG PER DAY
     Route: 048
     Dates: start: 20080321
  4. STOCRIN [Concomitant]
     Indication: HIV INFECTION
     Dosage: 600MG PER DAY
     Route: 048
     Dates: start: 20060814
  5. DIFLUCAN [Concomitant]
     Indication: PROPHYLAXIS
     Dosage: 400MG PER DAY
     Route: 048
     Dates: start: 20060801
  6. DIFLUCAN [Concomitant]
     Dosage: 200MG PER DAY
     Route: 048
     Dates: start: 20080314
  7. MICARDIS [Concomitant]
     Indication: HYPERTENSION
     Dosage: 20MG PER DAY
     Route: 048
     Dates: start: 20070730, end: 20080309
  8. EURODIN [Concomitant]
     Indication: INSOMNIA
     Dosage: 2MG PER DAY
     Route: 048
     Dates: start: 20070803, end: 20080314
  9. ADALAT [Concomitant]
     Indication: HYPERTENSION
     Dosage: 40MG PER DAY
     Route: 048
     Dates: start: 20080310
  10. NOVOLIN N [Concomitant]
     Indication: DIABETES MELLITUS
     Dosage: 4IU PER DAY
     Route: 058
     Dates: start: 20080327
  11. HUMULIN R [Concomitant]
     Indication: DIABETES MELLITUS
     Route: 058
     Dates: start: 20080310, end: 20080326

REACTIONS (12)
  - BLOOD ALBUMIN DECREASED [None]
  - BLOOD CREATININE INCREASED [None]
  - BLOOD GLUCOSE INCREASED [None]
  - BLOOD UREA INCREASED [None]
  - BLOOD URINE PRESENT [None]
  - GLUCOSE URINE PRESENT [None]
  - GLYCOSYLATED HAEMOGLOBIN INCREASED [None]
  - OEDEMA PERIPHERAL [None]
  - PROTEIN TOTAL INCREASED [None]
  - PROTEIN URINE PRESENT [None]
  - RENAL FAILURE CHRONIC [None]
  - URINE OUTPUT DECREASED [None]
